FAERS Safety Report 9162691 (Version 2)
Quarter: 2013Q3

REPORT INFORMATION
  Report Type: Spontaneous
  Country: US (occurrence: None)
  Receive Date: 20130222
  Receipt Date: 20130822
  Transmission Date: 20140515
  Serious: Yes (Disabling)
  Sender: FDA-Public Use
  Company Number: SYM-2013-00609

PATIENT
  Age: 59 Year
  Sex: Female

DRUGS (4)
  1. RIBAVIRIN [Suspect]
     Indication: HEPATITIS C
  2. EFFEXOR XR [Suspect]
     Indication: DEPRESSION
  3. PEGINTERFERON ALFA-2A [Suspect]
     Indication: HEPATITIS C
  4. CALCIUM [Concomitant]

REACTIONS (4)
  - Hepatitis C [None]
  - Feeling abnormal [None]
  - Visual impairment [None]
  - Deafness [None]
